FAERS Safety Report 25208666 (Version 2)
Quarter: 2025Q2

REPORT INFORMATION
  Report Type: Spontaneous
  Country: RS (occurrence: RS)
  Receive Date: 20250417
  Receipt Date: 20250514
  Transmission Date: 20250717
  Serious: Yes (Hospitalization, Other)
  Sender: BOEHRINGER INGELHEIM
  Company Number: RS-BoehringerIngelheim-2025-BI-021678

PATIENT
  Age: 71 Year
  Sex: Male
  Weight: 78 kg

DRUGS (6)
  1. JARDIANCE [Suspect]
     Active Substance: EMPAGLIFLOZIN
     Indication: Diabetes mellitus
     Dates: end: 20250408
  2. Glukofage [Concomitant]
     Indication: Product used for unknown indication
  3. GLICLAZIDE [Concomitant]
     Active Substance: GLICLAZIDE
     Indication: Product used for unknown indication
  4. Atakor [Concomitant]
     Indication: Product used for unknown indication
  5. RAMIPRIL [Concomitant]
     Active Substance: RAMIPRIL
     Indication: Product used for unknown indication
  6. Konkor [Concomitant]
     Indication: Product used for unknown indication

REACTIONS (7)
  - Ketoacidosis [Recovered/Resolved]
  - Respiratory acidosis [Recovered/Resolved]
  - Tachypnoea [Recovered/Resolved]
  - Blood pressure increased [Recovered/Resolved]
  - Prostate cancer [Unknown]
  - Pulmonary embolism [Recovered/Resolved]
  - Urinary tract infection [Recovered/Resolved]

NARRATIVE: CASE EVENT DATE: 20250407
